FAERS Safety Report 18896061 (Version 1)
Quarter: 2021Q1

REPORT INFORMATION
  Report Type: Spontaneous
  Country: US (occurrence: US)
  Receive Date: 20210216
  Receipt Date: 20210216
  Transmission Date: 20210420
  Serious: No
  Sender: FDA-Public Use
  Company Number: US-ALLERGAN-2046656US

PATIENT
  Age: 87 Year
  Sex: Female

DRUGS (2)
  1. OXYTROL FOR WOMEN [Suspect]
     Active Substance: OXYBUTYNIN
     Indication: HYPERTONIC BLADDER
     Dosage: 1 DF
     Route: 062
     Dates: start: 20201128, end: 20201130
  2. AMLODIPINE W/HYDROCHLOROTHIAZIDE [Concomitant]
     Indication: HYPERTENSION

REACTIONS (6)
  - Arthralgia [Recovered/Resolved]
  - Pain in extremity [Recovered/Resolved]
  - Blood pressure increased [Unknown]
  - Dizziness [Recovering/Resolving]
  - Heart rate increased [Unknown]
  - Muscular weakness [Recovered/Resolved]

NARRATIVE: CASE EVENT DATE: 20201129
